FAERS Safety Report 18711523 (Version 1)
Quarter: 2021Q1

REPORT INFORMATION
  Report Type: Report from Study
  Country: US (occurrence: US)
  Receive Date: 20210107
  Receipt Date: 20210107
  Transmission Date: 20210419
  Serious: Yes (Death, Hospitalization, Other)
  Sender: FDA-Public Use
  Company Number: US-BRISTOL-MYERS SQUIBB COMPANY-BMS-2021-000670

PATIENT
  Age: 61 Year
  Sex: Female
  Weight: 54.16 kg

DRUGS (3)
  1. NIVOLUMAB [Suspect]
     Active Substance: NIVOLUMAB
     Indication: BLADDER CANCER
     Dosage: UNK
     Route: 042
     Dates: start: 20200918, end: 20201123
  2. CABOZANTINIB [Suspect]
     Active Substance: CABOZANTINIB
     Indication: BLADDER CANCER
     Dosage: UNK
     Route: 048
     Dates: start: 20200918, end: 20201117
  3. IPILIMUMAB [Suspect]
     Active Substance: IPILIMUMAB
     Indication: BLADDER CANCER
     Dosage: UNK
     Route: 042
     Dates: start: 20200918, end: 20201012

REACTIONS (2)
  - Malignant neoplasm progression [Fatal]
  - Embolism [Unknown]

NARRATIVE: CASE EVENT DATE: 20201212
